FAERS Safety Report 21063375 (Version 1)
Quarter: 2022Q3

REPORT INFORMATION
  Report Type: Spontaneous
  Country: RS (occurrence: RS)
  Receive Date: 20220711
  Receipt Date: 20220711
  Transmission Date: 20221027
  Serious: Yes (Other)
  Sender: FDA-Public Use
  Company Number: RS-CELLTRION INC.-2022RS010707

PATIENT

DRUGS (34)
  1. INFLIXIMAB [Suspect]
     Active Substance: INFLIXIMAB
     Indication: Colitis ulcerative
     Dosage: UNK
     Dates: start: 202003
  2. INFLIXIMAB [Suspect]
     Active Substance: INFLIXIMAB
     Dosage: 5 MG/KG, III AMP
     Dates: start: 20200320
  3. INFLIXIMAB [Suspect]
     Active Substance: INFLIXIMAB
     Dosage: REMSIMA V AMP (7.5 MG/KG) EVERY 4 WEEKS/AFTER 1ST OPTIMISATION CYCLE...~
  4. INFLIXIMAB [Suspect]
     Active Substance: INFLIXIMAB
     Dosage: REMSIMA VI AMP (10 MG/KG) EVERY 4 WEEKS/AFTER 2ND OPTIMISATION CYCLE...
  5. VEDOLIZUMAB [Suspect]
     Active Substance: VEDOLIZUMAB
     Indication: Colitis ulcerative
     Dosage: 300 MG
     Dates: start: 202103
  6. VEDOLIZUMAB [Suspect]
     Active Substance: VEDOLIZUMAB
     Dosage: 300 MG, OPTIMISED TO 4 WEEKS, 6 MONTHS
     Dates: start: 202107
  7. TOFACITINIB [Suspect]
     Active Substance: TOFACITINIB
     Indication: Colitis ulcerative
     Dosage: UNK
     Dates: start: 20220210
  8. TOFACITINIB [Suspect]
     Active Substance: TOFACITINIB
     Dosage: THERAPY WAS OPTIMIZED 2X10 MG FOR ANOTHER EIGHT WEEKS
     Dates: start: 202204
  9. MESALAMINE [Concomitant]
     Active Substance: MESALAMINE
     Indication: Colitis ulcerative
     Dosage: LOCAL AND SYSTEMIC
  10. MESALAMINE [Concomitant]
     Active Substance: MESALAMINE
     Dosage: 3G/DAY
     Dates: start: 202103
  11. PREDNISONE [Concomitant]
     Active Substance: PREDNISONE
     Indication: Colitis ulcerative
     Dosage: AS PER TAPERED DOSE-REDUCTION SCHEME
     Dates: start: 202002
  12. PREDNISONE [Concomitant]
     Active Substance: PREDNISONE
     Dosage: 30 MG, AS PER TAPERED DOSE-REDUCTION SCHEME (30MG 1X1)
     Dates: start: 202003
  13. PREDNISONE [Concomitant]
     Active Substance: PREDNISONE
     Dosage: 20 MG, AS PER TAPERED DOSE-REDUCTION SCHEME (20MG 1X1)
     Dates: start: 20200320
  14. IMURAN [Concomitant]
     Active Substance: AZATHIOPRINE
     Indication: Colitis ulcerative
     Dosage: 2 MG/KG BODY MASS
     Dates: start: 202002
  15. PENTASA [Concomitant]
     Active Substance: MESALAMINE
     Indication: Colitis ulcerative
     Dosage: 1GR
     Dates: start: 202002
  16. PENTASA [Concomitant]
     Active Substance: MESALAMINE
     Dosage: 1GR
     Dates: start: 202003
  17. PENTASA [Concomitant]
     Active Substance: MESALAMINE
     Dosage: 1GR
     Dates: start: 20200320
  18. PENTASA [Concomitant]
     Active Substance: MESALAMINE
     Dosage: 1GR, AFTER 1ST OPTIMISATION CYCLE...~
  19. PENTASA [Concomitant]
     Active Substance: MESALAMINE
     Dosage: 1GR, AFTER 2ND OPTIMISATION CYCLE
  20. PENTASA [Concomitant]
     Active Substance: MESALAMINE
     Dosage: 1GR
     Dates: start: 202103
  21. PENTASA [Concomitant]
     Active Substance: MESALAMINE
     Indication: Colitis ulcerative
     Dosage: 1X6
     Dates: start: 20200320
  22. PENTASA [Concomitant]
     Active Substance: MESALAMINE
     Dosage: 1X6, AFTER 1ST OPTIMISATION CYCLE...~
  23. MESALAMINE [Concomitant]
     Active Substance: MESALAMINE
     Indication: Colitis ulcerative
     Dosage: 3 G
     Dates: start: 202002
  24. MESALAMINE [Concomitant]
     Active Substance: MESALAMINE
     Dosage: 3 G
     Dates: start: 202003
  25. MESALAMINE [Concomitant]
     Active Substance: MESALAMINE
     Dosage: 3 G
     Dates: start: 20200320
  26. PALITREX [Concomitant]
     Indication: Colitis ulcerative
     Dosage: 500 MG 2X2
     Dates: start: 202002
  27. METRONIDAZOLE [Concomitant]
     Active Substance: METRONIDAZOLE
     Indication: Colitis ulcerative
     Dosage: 400 MG 3X1
     Dates: start: 202002
  28. MYCOSEB [Concomitant]
     Indication: Colitis ulcerative
     Dosage: UNK
     Dates: start: 202002
  29. KLINDAMICIN [CLINDAMYCIN] [Concomitant]
     Indication: Colitis ulcerative
     Dosage: LOTION WITH 2% KLINDAMICIN
     Dates: start: 202002
  30. OMEPRAZOLE [Concomitant]
     Active Substance: OMEPRAZOLE
     Indication: Colitis ulcerative
     Dosage: UNK
     Dates: start: 202003
  31. OMEPRAZOLE [Concomitant]
     Active Substance: OMEPRAZOLE
     Dosage: UNK
     Dates: start: 20200320
  32. OMEPRAZOLE [Concomitant]
     Active Substance: OMEPRAZOLE
     Dosage: UNK
     Dates: start: 202103
  33. ASACOL [Concomitant]
     Active Substance: MESALAMINE
     Indication: Colitis ulcerative
     Dosage: 2X3/AFTER 2ND OPTIMISATION CYCLE
  34. BUDESONIDE [Concomitant]
     Active Substance: BUDESONIDE
     Indication: Colitis ulcerative
     Dosage: MMX 9MG 1X1
     Dates: start: 202103

REACTIONS (7)
  - Colitis ulcerative [Recovered/Resolved]
  - Diarrhoea [Recovered/Resolved]
  - Abdominal pain upper [Recovered/Resolved]
  - Infection [Unknown]
  - Condition aggravated [Unknown]
  - Drug ineffective [Unknown]
  - Off label use [Unknown]

NARRATIVE: CASE EVENT DATE: 20200201
